FAERS Safety Report 13414087 (Version 1)
Quarter: 2017Q2

REPORT INFORMATION
  Report Type: Spontaneous
  Country: US (occurrence: US)
  Receive Date: 20170407
  Receipt Date: 20170407
  Transmission Date: 20170830
  Serious: Yes (Disabling, Other)
  Sender: FDA-Public Use
  Company Number: None

PATIENT
  Age: 26 Year
  Sex: Female
  Weight: 65.83 kg

DRUGS (12)
  1. IRON [Concomitant]
     Active Substance: IRON
  2. SPIRIVA [Concomitant]
     Active Substance: TIOTROPIUM BROMIDE MONOHYDRATE
  3. CLINDAMYCIN. [Concomitant]
     Active Substance: CLINDAMYCIN
  4. IBUPROFEN. [Concomitant]
     Active Substance: IBUPROFEN
  5. TYLENOL WITH CODEINE [Concomitant]
     Active Substance: ACETAMINOPHEN\CODEINE PHOSPHATE
  6. MULTIVITAMIN [Concomitant]
     Active Substance: VITAMINS
  7. ZYFLO [Suspect]
     Active Substance: ZILEUTON
     Indication: ASTHMA
     Dosage: 2  PILLS
     Route: 048
     Dates: start: 20151005, end: 20151217
  8. SINGULAIR [Concomitant]
     Active Substance: MONTELUKAST SODIUM
  9. SYMBICORT [Concomitant]
     Active Substance: BUDESONIDE\FORMOTEROL FUMARATE DIHYDRATE
  10. QVAR [Concomitant]
     Active Substance: BECLOMETHASONE DIPROPIONATE
  11. ALBUTEROL (NEB) (INHALER) [Concomitant]
  12. ALLERGY MED [Concomitant]

REACTIONS (16)
  - Palpitations [None]
  - Muscular weakness [None]
  - Cough [None]
  - Photophobia [None]
  - Migraine [None]
  - Nausea [None]
  - Ear pain [None]
  - Headache [None]
  - Injection site pain [None]
  - Tinnitus [None]
  - Wheezing [None]
  - Vomiting [None]
  - Asthma [None]
  - Arthralgia [None]
  - Haemoptysis [None]
  - Dyspnoea [None]

NARRATIVE: CASE EVENT DATE: 20151010
